FAERS Safety Report 7912200-4 (Version None)
Quarter: 2011Q4

REPORT INFORMATION
  Report Type: 
  Country: None (occurrence: None)
  Receive Date: 20111114
  Receipt Date: 20110223
  Transmission Date: 20120403
  Serious: No
  Sender: FDA-Public Use
  Company Number: US-BAYER-2011-017904

PATIENT
  Sex: Female

DRUGS (1)
  1. CLIMARA [Suspect]
     Dosage: UNK
     Route: 062
     Dates: start: 20090701

REACTIONS (1)
  - APPLICATION SITE IRRITATION [None]
